FAERS Safety Report 16535164 (Version 1)
Quarter: 2019Q3

REPORT INFORMATION
  Report Type: Spontaneous
  Country: CN (occurrence: CN)
  Receive Date: 20190705
  Receipt Date: 20190705
  Transmission Date: 20191004
  Serious: Yes (Other)
  Sender: FDA-Public Use
  Company Number: CN-009507513-1907CHN000254

PATIENT
  Age: 86 Year
  Sex: Male

DRUGS (5)
  1. PROSCAR [Suspect]
     Active Substance: FINASTERIDE
     Dosage: 1 TABLET, QD
     Route: 048
     Dates: start: 201704, end: 201711
  2. PROSCAR [Suspect]
     Active Substance: FINASTERIDE
     Indication: BENIGN PROSTATIC HYPERPLASIA
     Dosage: 1 TABLET, QD
     Route: 048
     Dates: start: 2008, end: 201702
  3. PROSCAR [Suspect]
     Active Substance: FINASTERIDE
     Dosage: 2 TABLETS, QD
     Route: 048
     Dates: start: 201711
  4. PROSCAR [Suspect]
     Active Substance: FINASTERIDE
     Dosage: 2 TABLETS, QD
     Route: 048
     Dates: start: 201702, end: 201704
  5. HARNAL [Concomitant]
     Active Substance: TAMSULOSIN HYDROCHLORIDE
     Indication: BENIGN PROSTATIC HYPERPLASIA
     Dosage: UNK

REACTIONS (10)
  - Urinary bladder haemorrhage [Unknown]
  - Haematuria [Recovered/Resolved]
  - Enostosis [Unknown]
  - Incorrect dose administered [Unknown]
  - Renal cyst [Unknown]
  - Hepatic cyst [Unknown]
  - Aortic arteriosclerosis [Unknown]
  - Tendon calcification [Unknown]
  - Cholelithiasis [Unknown]
  - Haematuria [Recovered/Resolved]

NARRATIVE: CASE EVENT DATE: 201702
